FAERS Safety Report 5094129-5 (Version None)
Quarter: 2006Q3

REPORT INFORMATION
  Report Type: 
  Country: None (occurrence: None)
  Receive Date: 20060831
  Receipt Date: 20060823
  Transmission Date: 20061208
  Serious: Yes (Hospitalization)
  Sender: FDA-Public Use
  Company Number: CM-MERCK-0608USA05714

PATIENT
  Age: 42 Year
  Sex: Male

DRUGS (1)
  1. STROMECTOL [Suspect]
     Route: 048
     Dates: start: 20060801, end: 20060801

REACTIONS (6)
  - DYSSTASIA [None]
  - HEADACHE [None]
  - NECK PAIN [None]
  - PYREXIA [None]
  - TREMOR [None]
  - VERTIGO [None]
